FAERS Safety Report 12606763 (Version 1)
Quarter: 2016Q3

REPORT INFORMATION
  Report Type: Spontaneous
  Country: FR (occurrence: FR)
  Receive Date: 20160729
  Receipt Date: 20160729
  Transmission Date: 20161109
  Serious: Yes (Hospitalization)
  Sender: FDA-Public Use
  Company Number: FR-CONCORDIA PHARMACEUTICALS INC.-CO-PL-FR-2016-400

PATIENT
  Age: 48 Year
  Sex: Female

DRUGS (8)
  1. ZAMUDOL [Suspect]
     Active Substance: TRAMADOL HYDROCHLORIDE
     Indication: PRODUCT USED FOR UNKNOWN INDICATION
     Route: 048
     Dates: start: 20160603
  2. BIPROFENID [Suspect]
     Active Substance: KETOPROFEN
     Indication: PRODUCT USED FOR UNKNOWN INDICATION
     Route: 048
     Dates: start: 20160529, end: 20160531
  3. ALPRAZOLAM. [Suspect]
     Active Substance: ALPRAZOLAM
     Indication: PRODUCT USED FOR UNKNOWN INDICATION
     Route: 048
     Dates: start: 20160527, end: 20160613
  4. MONOALGIC LP (200 MG, GASTRO-RESISTANT TABLET) (TRAMADOL) [Suspect]
     Active Substance: TRAMADOL HYDROCHLORIDE
     Indication: PRODUCT USED FOR UNKNOWN INDICATION
     Route: 048
     Dates: start: 20160529, end: 20160603
  5. TWYNSTA [Concomitant]
     Active Substance: AMLODIPINE BESYLATE\TELMISARTAN
  6. PLAQUENIL [Suspect]
     Active Substance: HYDROXYCHLOROQUINE SULFATE
     Indication: SYSTEMIC LUPUS ERYTHEMATOSUS
     Route: 048
     Dates: start: 201510, end: 20160617
  7. CORTANCYL [Concomitant]
     Active Substance: PREDNISONE
     Dates: end: 20160531
  8. DOLIPRANE [Suspect]
     Active Substance: ACETAMINOPHEN
     Indication: PRODUCT USED FOR UNKNOWN INDICATION
     Route: 048
     Dates: start: 20160527, end: 20160606

REACTIONS (8)
  - Systemic lupus erythematosus [None]
  - Middle insomnia [None]
  - Cell death [None]
  - Proteinuria [None]
  - Synovitis [None]
  - Hepatocellular injury [Unknown]
  - Blood creatine phosphokinase increased [Unknown]
  - Iatrogenic injury [None]

NARRATIVE: CASE EVENT DATE: 20160527
